FAERS Safety Report 8925457 (Version 1)
Quarter: 2012Q4

REPORT INFORMATION
  Report Type: 
  Country: AU (occurrence: AU)
  Receive Date: 20121126
  Receipt Date: 20121126
  Transmission Date: 20130627
  Serious: Yes (Other)
  Sender: FDA-Public Use
  Company Number: AU-ROCHE-1156940

PATIENT
  Age: 35 Year

DRUGS (1)
  1. ROACCUTANE [Suspect]
     Indication: PRODUCT USED FOR UNKNOWN INDICATION
     Route: 065

REACTIONS (10)
  - Depression [Unknown]
  - Suicide attempt [Unknown]
  - Anxiety [Unknown]
  - Mood swings [Unknown]
  - Arthralgia [Unknown]
  - Neck pain [Unknown]
  - Vision blurred [Unknown]
  - Headache [Unknown]
  - Lethargy [Unknown]
  - Apathy [Unknown]
